FAERS Safety Report 21980841 (Version 7)
Quarter: 2023Q2

REPORT INFORMATION
  Report Type: Spontaneous
  Country: CA (occurrence: CA)
  Receive Date: 20230211
  Receipt Date: 20230424
  Transmission Date: 20230721
  Serious: Yes (Other)
  Sender: FDA-Public Use
  Company Number: CA-CELLTRION INC.-2022CA021291

PATIENT

DRUGS (9)
  1. INFLECTRA [Suspect]
     Active Substance: INFLIXIMAB-DYYB
     Indication: Colitis ulcerative
     Dosage: W0, 2, 6 AND Q8 WEEKS
     Route: 042
     Dates: start: 20221026, end: 20230201
  2. INFLECTRA [Suspect]
     Active Substance: INFLIXIMAB-DYYB
     Dosage: W0, 2, 6 AND Q8 WEEKS
     Route: 042
     Dates: start: 20221108
  3. INFLECTRA [Suspect]
     Active Substance: INFLIXIMAB-DYYB
     Dosage: W0, 2, 6 AND Q8 WEEKS
     Route: 042
     Dates: start: 20221207
  4. INFLECTRA [Suspect]
     Active Substance: INFLIXIMAB-DYYB
     Dosage: W0, 2, 6 AND Q8 WEEKS
     Route: 042
     Dates: start: 20230201, end: 20230201
  5. INFLECTRA [Suspect]
     Active Substance: INFLIXIMAB-DYYB
     Dosage: EVERY 4 WEEKS
     Route: 042
     Dates: start: 20230303
  6. INFLECTRA [Suspect]
     Active Substance: INFLIXIMAB-DYYB
     Dosage: 400 MG, EVERY 4 WEEKS
     Route: 042
     Dates: start: 20230303
  7. INFLECTRA [Suspect]
     Active Substance: INFLIXIMAB-DYYB
     Dosage: EVERY 4 WEEKS
     Route: 042
     Dates: start: 20230329
  8. PENTASA [Concomitant]
     Active Substance: MESALAMINE
     Dosage: 1 DF
  9. PREDNISONE [Concomitant]
     Active Substance: PREDNISONE
     Dosage: 1 DF

REACTIONS (7)
  - Weight decreased [Not Recovered/Not Resolved]
  - Condition aggravated [Recovering/Resolving]
  - Drug ineffective [Unknown]
  - Eczema [Not Recovered/Not Resolved]
  - Condition aggravated [Recovering/Resolving]
  - Malaise [Unknown]
  - Off label use [Unknown]

NARRATIVE: CASE EVENT DATE: 20220101
